FAERS Safety Report 8764736 (Version 1)
Quarter: 2012Q4

REPORT INFORMATION
  Report Type: 
  Country: GB (occurrence: GB)
  Receive Date: 20120831
  Receipt Date: 20120831
  Transmission Date: 20130627
  Serious: Yes (Other)
  Sender: FDA-Public Use
  Company Number: GB-MERCK-1208GBR011827

PATIENT

DRUGS (8)
  1. DEXAMETHASONE TABLETS BP  2.0MG [Suspect]
     Indication: POSTOPERATIVE CARE
     Dosage: 2 mg, tid
     Route: 048
     Dates: start: 20120328
  2. DEXAMETHASONE TABLETS BP  2.0MG [Suspect]
     Dosage: 500 Microgram, UNK
     Route: 048
  3. CANDESARTAN [Concomitant]
     Dosage: 2 mg, qd
  4. LAMICTAL [Concomitant]
     Dosage: 200 mg, bid
  5. LANSOPRAZOLE [Concomitant]
     Dosage: 30 mg, qd
  6. LEVETIRACETAM [Concomitant]
     Dosage: 500 mg, UNK
  7. TOPIRAMATE [Concomitant]
     Dosage: 25 mg, qd
  8. ZINC SULFATE [Concomitant]
     Dosage: 1205 mg, Once

REACTIONS (4)
  - Confusional state [Recovered/Resolved]
  - Hallucination [Recovered/Resolved]
  - Hemiparesis [Recovered/Resolved]
  - Withdrawal syndrome [Recovered/Resolved]
